FAERS Safety Report 24882347 (Version 1)
Quarter: 2025Q1

REPORT INFORMATION
  Report Type: Report from Study
  Country: IN (occurrence: IN)
  Receive Date: 20250124
  Receipt Date: 20250124
  Transmission Date: 20250409
  Serious: Yes (Hospitalization)
  Sender: ROCHE
  Company Number: IN-ROCHE-10000185193

PATIENT
  Age: 53 Year
  Sex: Female

DRUGS (1)
  1. PHESGO [Suspect]
     Active Substance: HYALURONIDASE-ZZXF\PERTUZUMAB\TRASTUZUMAB
     Indication: Breast cancer
     Route: 058
     Dates: start: 20240127

REACTIONS (5)
  - Modified radical mastectomy [Unknown]
  - Skin reaction [Unknown]
  - Intraductal proliferative breast lesion [Unknown]
  - Pleomorphism [Unknown]
  - Medical device implantation [Unknown]

NARRATIVE: CASE EVENT DATE: 20240127
